FAERS Safety Report 17152941 (Version 1)
Quarter: 2019Q4

REPORT INFORMATION
  Report Type: Spontaneous
  Country: US (occurrence: US)
  Receive Date: 20191213
  Receipt Date: 20191213
  Transmission Date: 20200122
  Serious: No
  Sender: FDA-Public Use
  Company Number: US-ASTRAZENECA-2019SF63727

PATIENT
  Age: 66 Year
  Sex: Male
  Weight: 61.2 kg

DRUGS (1)
  1. LOKELMA [Suspect]
     Active Substance: SODIUM ZIRCONIUM CYCLOSILICATE
     Indication: BLOOD POTASSIUM INCREASED
     Route: 048

REACTIONS (2)
  - Eye swelling [Unknown]
  - Peripheral swelling [Recovered/Resolved with Sequelae]
